FAERS Safety Report 5437630-4 (Version None)
Quarter: 2007Q3

REPORT INFORMATION
  Report Type: 
  Country: None (occurrence: None)
  Receive Date: 20070831
  Receipt Date: 20070727
  Transmission Date: 20080115
  Serious: No
  Sender: FDA-Public Use
  Company Number: A0666495A

PATIENT
  Age: 55 Year
  Sex: Female

DRUGS (2)
  1. ALLI [Suspect]
  2. CYMBALTA [Concomitant]

REACTIONS (4)
  - CONSTIPATION [None]
  - FLATULENCE [None]
  - MIGRAINE [None]
  - NAUSEA [None]
